FAERS Safety Report 10395549 (Version 1)
Quarter: 2014Q1

REPORT INFORMATION
  Report Type: Spontaneous
  Country: US (occurrence: None)
  Receive Date: 20130220
  Receipt Date: 20130220
  Transmission Date: 20141002
  Serious: No
  Sender: FDA-Public Use
  Company Number: 1000039192

PATIENT
  Age: 65 Year
  Sex: Male

DRUGS (3)
  1. VIIBRYD [Suspect]
     Indication: ANXIETY
     Route: 048
     Dates: start: 201206, end: 2012
  2. VIIBRYD [Suspect]
     Indication: DEPRESSION
     Route: 048
     Dates: start: 201206, end: 2012
  3. BUSPIRONE (BUSPIRONE)(BUSPIRONE) [Concomitant]

REACTIONS (4)
  - Joint stiffness [None]
  - Arthralgia [None]
  - Joint crepitation [None]
  - Arthritis [None]
